FAERS Safety Report 23745478 (Version 4)
Quarter: 2024Q2

REPORT INFORMATION
  Report Type: Spontaneous
  Country: BR (occurrence: BR)
  Receive Date: 20240416
  Receipt Date: 20240528
  Transmission Date: 20240716
  Serious: Yes (Hospitalization, Other)
  Sender: FDA-Public Use
  Company Number: BR-SA-SAC20240410000131

PATIENT
  Age: 42 Year
  Sex: Female
  Weight: 65 kg

DRUGS (14)
  1. LANTUS [Suspect]
     Active Substance: INSULIN GLARGINE
     Dosage: UNK UNK, QD
     Route: 058
  2. LANTUS [Suspect]
     Active Substance: INSULIN GLARGINE
     Dosage: 24 IU, QD
  3. PURAN [Suspect]
     Active Substance: LEVOTHYROXINE SODIUM
  4. ENALAPRIL MALEATE [Suspect]
     Active Substance: ENALAPRIL MALEATE
     Dosage: UNK
  5. AMLODIPINE BESYLATE [Suspect]
     Active Substance: AMLODIPINE BESYLATE
     Dosage: UNK
  6. ATORVASTATIN CALCIUM [Concomitant]
     Active Substance: ATORVASTATIN CALCIUM
  7. FUROSEMIDE [Concomitant]
     Active Substance: FUROSEMIDE
  8. ISOSORBIDE [Concomitant]
     Active Substance: ISOSORBIDE
  9. SPIRONOLACTONE [Concomitant]
     Active Substance: SPIRONOLACTONE
  10. ASPARTATE [Concomitant]
  11. DIHYDROERGOCRISTINE [Concomitant]
     Active Substance: DIHYDROERGOCRISTINE
  12. PROPRANOLOL HYDROCHLORIDE [Concomitant]
     Active Substance: PROPRANOLOL HYDROCHLORIDE
  13. APRESOLINE HYDROCHLORIDE [Concomitant]
     Active Substance: HYDRALAZINE HYDROCHLORIDE
  14. INSULIN GLARGINE [Concomitant]
     Active Substance: INSULIN GLARGINE

REACTIONS (13)
  - Renal failure [Not Recovered/Not Resolved]
  - Myocardial infarction [Recovered/Resolved]
  - Cataract [Unknown]
  - Blood glucose decreased [Recovered/Resolved]
  - Diabetes mellitus inadequate control [Unknown]
  - Urinary tract infection [Unknown]
  - Arthralgia [Recovering/Resolving]
  - Pain [Recovering/Resolving]
  - Back pain [Recovering/Resolving]
  - Anaemia [Unknown]
  - Eye haemorrhage [Unknown]
  - Device use issue [Unknown]
  - Expired device used [Unknown]

NARRATIVE: CASE EVENT DATE: 20240301
